FAERS Safety Report 5407080-5 (Version None)
Quarter: 2007Q3

REPORT INFORMATION
  Report Type: 
  Country: None (occurrence: None)
  Receive Date: 20070807
  Receipt Date: 20070727
  Transmission Date: 20080115
  Serious: Yes (Death)
  Sender: FDA-Public Use
  Company Number: JP-JNJFOC-20060805653

PATIENT
  Age: 67 Year
  Sex: Male

DRUGS (5)
  1. MICONAZOLE [Suspect]
     Route: 042
     Dates: start: 20060811, end: 20060812
  2. MICONAZOLE [Suspect]
     Indication: GASTROINTESTINAL FUNGAL INFECTION
     Route: 042
     Dates: start: 20060811, end: 20060812
  3. CEFOTAXIME SODIUM [Concomitant]
     Route: 065
  4. LANSOPRAZOLE [Concomitant]
     Route: 065
  5. METHYPHENIDATE HYDROCHLORIDE [Concomitant]
     Route: 065

REACTIONS (5)
  - BLOOD BILIRUBIN INCREASED [None]
  - BLOOD UREA INCREASED [None]
  - HAEMOGLOBIN DECREASED [None]
  - SEPSIS [None]
  - WHITE BLOOD CELL COUNT DECREASED [None]
